FAERS Safety Report 13727311 (Version 1)
Quarter: 2017Q3

REPORT INFORMATION
  Report Type: Spontaneous
  Country: DE (occurrence: DE)
  Receive Date: 20170706
  Receipt Date: 20170706
  Transmission Date: 20171127
  Serious: Yes (Other)
  Sender: FDA-Public Use
  Company Number: DE-ALLERGAN-1727932US

PATIENT
  Sex: Female
  Weight: 89 kg

DRUGS (1)
  1. PYLERA [Suspect]
     Active Substance: BISMUTH SUBCITRATE POTASSIUM\METRONIDAZOLE\TETRACYCLINE HYDROCHLORIDE
     Indication: HELICOBACTER GASTRITIS
     Dosage: 4 X 3 DF DAILY
     Route: 048

REACTIONS (4)
  - Decreased appetite [Recovered/Resolved]
  - Nausea [Recovering/Resolving]
  - Transaminases increased [Recovered/Resolved]
  - Lip ulceration [Recovered/Resolved]

NARRATIVE: CASE EVENT DATE: 20160922
